FAERS Safety Report 9300976 (Version 1)
Quarter: 2013Q2

REPORT INFORMATION
  Report Type: Spontaneous
  Country: US (occurrence: US)
  Receive Date: 20130521
  Receipt Date: 20130521
  Transmission Date: 20140414
  Serious: No
  Sender: FDA-Public Use
  Company Number: US-PFIZER INC-2013154472

PATIENT
  Age: 68 Year
  Sex: Female
  Weight: 83.9 kg

DRUGS (3)
  1. LYRICA [Suspect]
     Indication: PAIN IN EXTREMITY
     Dosage: 75 MG, 2X/DAY
     Route: 048
     Dates: start: 201304
  2. LEXAPRO [Concomitant]
     Indication: STRESS
     Dosage: UNK
  3. LEXAPRO [Concomitant]
     Indication: ANXIETY

REACTIONS (1)
  - Somnolence [Recovering/Resolving]
